FAERS Safety Report 19933683 (Version 1)
Quarter: 2021Q4

REPORT INFORMATION
  Report Type: Spontaneous
  Country: US (occurrence: US)
  Receive Date: 20211007
  Receipt Date: 20211007
  Transmission Date: 20220303
  Serious: Yes (Other)
  Sender: FDA-Public Use
  Company Number: None

PATIENT
  Age: 58 Year
  Sex: Female
  Weight: 117.93 kg

DRUGS (5)
  1. MEROPENEM [Suspect]
     Active Substance: MEROPENEM
  2. DAPTOMYCIN [Suspect]
     Active Substance: DAPTOMYCIN
  3. INSULIN NOS [Concomitant]
     Active Substance: INSULIN NOS
  4. WARFARIN [Concomitant]
     Active Substance: WARFARIN
  5. PREVENTAL [Concomitant]

REACTIONS (7)
  - Dizziness [None]
  - Nausea [None]
  - Diarrhoea [None]
  - Dyspnoea [None]
  - Blindness [None]
  - Muscle spasms [None]
  - Gait disturbance [None]

NARRATIVE: CASE EVENT DATE: 20210901
